FAERS Safety Report 22990954 (Version 2)
Quarter: 2023Q4

REPORT INFORMATION
  Report Type: Spontaneous
  Country: CN (occurrence: None)
  Receive Date: 20230927
  Receipt Date: 20231011
  Transmission Date: 20240110
  Serious: Yes (Other)
  Sender: FDA-Public Use
  Company Number: 2023A216814

PATIENT
  Age: 26366 Day
  Sex: Male

DRUGS (2)
  1. BUDESONIDE [Suspect]
     Active Substance: BUDESONIDE
     Indication: Tachypnoea
     Route: 055
     Dates: start: 20230911, end: 20230914
  2. TERBUTALINE SULFATE [Suspect]
     Active Substance: TERBUTALINE SULFATE
     Indication: Tachypnoea
     Route: 055
     Dates: start: 20230911, end: 20230914

REACTIONS (4)
  - Tachypnoea [Recovering/Resolving]
  - Hyperhidrosis [Recovering/Resolving]
  - Tracheal disorder [Recovering/Resolving]
  - Oxygen saturation decreased [Recovering/Resolving]

NARRATIVE: CASE EVENT DATE: 20230914
